FAERS Safety Report 7608249-1 (Version None)
Quarter: 2011Q3

REPORT INFORMATION
  Report Type: 
  Country: None (occurrence: None)
  Receive Date: 20110714
  Receipt Date: 20110704
  Transmission Date: 20111222
  Serious: Yes (Other)
  Sender: FDA-Public Use
  Company Number: BR-NOVOPROD-331276

PATIENT
  Age: 29 Year
  Sex: Female
  Weight: 49 kg

DRUGS (2)
  1. NOVOLIN N [Suspect]
     Indication: TYPE 1 DIABETES MELLITUS
     Dosage: 40 U, QD (24U-8U-8U)
     Route: 058
     Dates: start: 20050101
  2. LEXAPRO [Concomitant]
     Indication: DEPRESSION
     Dosage: HALF A TABLET
     Route: 048

REACTIONS (4)
  - DIARRHOEA [None]
  - BLOOD GLUCOSE DECREASED [None]
  - CONVULSION [None]
  - HYPERHIDROSIS [None]
